FAERS Safety Report 4902843-4 (Version None)
Quarter: 2006Q1

REPORT INFORMATION
  Report Type: 
  Country: None (occurrence: None)
  Receive Date: 20060207
  Receipt Date: 20060127
  Transmission Date: 20060701
  Serious: Yes (Other)
  Sender: FDA-Public Use
  Company Number: PHBS2006BR01644

PATIENT
  Age: 57 Year
  Sex: Female

DRUGS (1)
  1. ZOMETA [Suspect]
     Indication: BREAST CANCER FEMALE
     Dosage: 4 MG EVERY 28 DAYS

REACTIONS (3)
  - BONE DEBRIDEMENT [None]
  - DENTAL PROSTHESIS PLACEMENT [None]
  - OSTEONECROSIS [None]
